FAERS Safety Report 9315000 (Version 2)
Quarter: 2013Q2

REPORT INFORMATION
  Report Type: Spontaneous
  Country: US (occurrence: US)
  Receive Date: 20130529
  Receipt Date: 20130531
  Transmission Date: 20140414
  Serious: Yes (Other)
  Sender: FDA-Public Use
  Company Number: US-PFIZER INC-2013162797

PATIENT
  Age: 63 Year
  Sex: Female
  Weight: 68.03 kg

DRUGS (4)
  1. LYRICA [Suspect]
     Indication: FIBROMYALGIA
     Dosage: 75 MG, 2X/DAY
     Dates: start: 20130207, end: 201303
  2. BACLOFEN [Suspect]
     Indication: MYALGIA
     Dosage: 10 MG, AS NEEDED
     Dates: start: 20130207, end: 20130516
  3. SYNTHROID [Concomitant]
     Indication: HYPOTHYROIDISM
     Dosage: 150 UG, 1X/DAY
  4. METHOCARBAMOL [Concomitant]
     Indication: MYALGIA
     Dosage: 750 MG, AS NEEDED
     Dates: start: 2013

REACTIONS (8)
  - Joint swelling [Recovering/Resolving]
  - Joint stiffness [Unknown]
  - Arthralgia [Recovering/Resolving]
  - Pain in extremity [Recovering/Resolving]
  - Gait disturbance [Recovering/Resolving]
  - Urticaria [Recovering/Resolving]
  - Somnolence [Unknown]
  - Fatigue [Unknown]
